FAERS Safety Report 4853290-5 (Version None)
Quarter: 2005Q4

REPORT INFORMATION
  Report Type: 
  Country: None (occurrence: None)
  Receive Date: 20051214
  Receipt Date: 20051209
  Transmission Date: 20060501
  Serious: Yes (Other)
  Sender: FDA-Public Use
  Company Number: US-GLAXOSMITHKLINE-A0585236A

PATIENT
  Age: 16 Year
  Sex: Male

DRUGS (2)
  1. LAMICTAL [Suspect]
     Indication: EPILEPSY
     Dosage: 500MG UNKNOWN
     Route: 048
  2. UNKNOWN [Concomitant]

REACTIONS (2)
  - MEDICATION ERROR [None]
  - PETIT MAL EPILEPSY [None]
